FAERS Safety Report 9280423 (Version 4)
Quarter: 2013Q2

REPORT INFORMATION
  Report Type: Report from Study
  Country: DE (occurrence: DE)
  Receive Date: 20130509
  Receipt Date: 20130523
  Transmission Date: 20140414
  Serious: Yes (Hospitalization)
  Sender: FDA-Public Use
  Company Number: PHHO2013DE006100

PATIENT
  Sex: 0

DRUGS (12)
  1. EVEROLIMUS [Suspect]
     Indication: RENAL TRANSPLANT
     Dosage: 1.5 MG, BID
     Route: 048
     Dates: start: 20110513
  2. EVEROLIMUS [Suspect]
     Dosage: 1.75 MG, BID
     Route: 048
     Dates: start: 20110911
  3. EVEROLIMUS [Suspect]
     Dosage: 1.5 MG, BID
     Route: 048
     Dates: start: 20111004
  4. EVEROLIMUS [Suspect]
     Dosage: 1.25 MG, BID
     Route: 048
     Dates: start: 20111009
  5. NEORAL [Suspect]
     Indication: RENAL TRANSPLANT
     Dosage: 80 MG, BID
     Route: 048
     Dates: start: 20110416
  6. NEORAL [Suspect]
     Dosage: 100 MG, BID
     Route: 048
     Dates: start: 20110908
  7. NEORAL [Suspect]
     Dosage: 90 MG, BID
     Route: 048
     Dates: start: 20110916
  8. NEORAL [Suspect]
     Dosage: 100 MG, BID
     Route: 048
     Dates: start: 20110929
  9. NEORAL [Suspect]
     Dosage: 80 MG, BID
     Route: 048
     Dates: start: 20111007
  10. NEORAL [Suspect]
     Dosage: 75 MG, BID
     Route: 048
     Dates: start: 20111009
  11. PREDNISOLONE SANDOZ [Suspect]
     Indication: IMMUNOSUPPRESSANT DRUG THERAPY
     Dosage: 5 MG, QD
     Route: 048
     Dates: start: 20110416
  12. IMMUNOGLOBULINS [Concomitant]

REACTIONS (6)
  - Blood creatinine increased [Recovered/Resolved]
  - Hyperkalaemia [Recovered/Resolved]
  - Dehydration [Recovered/Resolved with Sequelae]
  - Kidney transplant rejection [Recovered/Resolved]
  - Respiratory tract infection [Recovered/Resolved]
  - Enteritis [Recovered/Resolved]
